FAERS Safety Report 8430496-X (Version None)
Quarter: 2012Q2

REPORT INFORMATION
  Report Type: 
  Country: None (occurrence: None)
  Receive Date: 20120323
  Receipt Date: 20110606
  Transmission Date: 20120825
  Serious: Yes (Hospitalization)
  Sender: FDA-Public Use
  Company Number: 163-21880-11060913

PATIENT
  Age: 69 Year
  Sex: Male

DRUGS (3)
  1. REVLIMID [Suspect]
     Indication: MULTIPLE MYELOMA
     Dosage: 25 MG, DAILY X 21 DAYS, PO; 15 MG, EVERY MONDAY AND THURSDAY, PO; 10 MG, EVERY MONDAY AND THURSDAY
     Route: 048
     Dates: start: 20081201
  2. REVLIMID [Suspect]
     Indication: MULTIPLE MYELOMA
     Dosage: 25 MG, DAILY X 21 DAYS, PO; 15 MG, EVERY MONDAY AND THURSDAY, PO; 10 MG, EVERY MONDAY AND THURSDAY
     Route: 048
     Dates: start: 20100601
  3. REVLIMID [Suspect]
     Indication: MULTIPLE MYELOMA
     Dosage: 25 MG, DAILY X 21 DAYS, PO; 15 MG, EVERY MONDAY AND THURSDAY, PO; 10 MG, EVERY MONDAY AND THURSDAY
     Route: 048
     Dates: start: 20090501

REACTIONS (1)
  - PNEUMONIA [None]
